FAERS Safety Report 15142318 (Version 1)
Quarter: 2018Q3

REPORT INFORMATION
  Report Type: Spontaneous
  Country: BR (occurrence: BR)
  Receive Date: 20180713
  Receipt Date: 20180713
  Transmission Date: 20181010
  Serious: Yes (Hospitalization)
  Sender: FDA-Public Use
  Company Number: BR-GLAXOSMITHKLINE-BR2018GSK121809

PATIENT
  Age: 6 Month
  Sex: Female
  Weight: 6 kg

DRUGS (3)
  1. FLIXOTIDE [Suspect]
     Active Substance: FLUTICASONE PROPIONATE
     Indication: BRONCHIOLITIS
     Dosage: 1 PUFF(S), BID
  2. ALLEGRA [Concomitant]
     Active Substance: FEXOFENADINE HYDROCHLORIDE
     Indication: PRODUCT USED FOR UNKNOWN INDICATION
     Dosage: 2.5 ML, BID
  3. AEROLIN [Suspect]
     Active Substance: ALBUTEROL
     Indication: BRONCHOSPASM
     Dosage: 2 PUFF(S), QID

REACTIONS (7)
  - Product prescribing issue [Recovered/Resolved]
  - Influenza [Unknown]
  - Product use issue [Unknown]
  - Urinary tract infection [Unknown]
  - Wheezing [Unknown]
  - Product use in unapproved indication [Unknown]
  - Nasal congestion [Unknown]
